FAERS Safety Report 5336864-7 (Version None)
Quarter: 2007Q2

REPORT INFORMATION
  Report Type: 
  Country: None (occurrence: None)
  Receive Date: 20070524
  Receipt Date: 20070524
  Transmission Date: 20071010
  Serious: Yes (Disabling)
  Sender: FDA-Public Use
  Company Number: None

PATIENT
  Age: 84 Year
  Sex: Male

DRUGS (2)
  1. CELEBREX [Suspect]
     Indication: ARTHRITIS
     Dosage: 200MG ONCE DAILY PO
     Route: 048
  2. ALTACE [Suspect]
     Indication: HYPERTENSION
     Dosage: 2.5MG ONCE DAILY PO
     Route: 048

REACTIONS (3)
  - DEHYDRATION [None]
  - DIALYSIS [None]
  - RENAL FAILURE ACUTE [None]
